FAERS Safety Report 19987846 (Version 1)
Quarter: 2021Q4

REPORT INFORMATION
  Report Type: Spontaneous
  Country: FR (occurrence: FR)
  Receive Date: 20211023
  Receipt Date: 20211023
  Transmission Date: 20220303
  Serious: Yes (Other)
  Sender: FDA-Public Use
  Company Number: FR-ABBVIE-21K-056-4129292-00

PATIENT
  Age: 59 Year
  Sex: Female
  Weight: 89.5 kg

DRUGS (5)
  1. VALPROATE SODIUM [Suspect]
     Active Substance: VALPROATE SODIUM
     Indication: Epilepsy
     Route: 048
  2. LEVOTHYROXINE SODIUM [Suspect]
     Active Substance: LEVOTHYROXINE SODIUM
     Indication: Hypothyroidism
     Route: 048
  3. CARBAMAZEPINE [Suspect]
     Active Substance: CARBAMAZEPINE
     Indication: Epilepsy
     Route: 048
  4. ATENOLOL\CHLORTHALIDONE [Suspect]
     Active Substance: ATENOLOL\CHLORTHALIDONE
     Indication: Hypertension
     Dosage: 50/12.5 MG
     Route: 048
  5. GINKGO EXTRACT\HEPTAMINOL\TROXERUTIN [Suspect]
     Active Substance: GINKGO\HEPTAMINOL\TROXERUTIN
     Indication: Product used for unknown indication
     Route: 048

REACTIONS (5)
  - Hyponatraemia [Recovered/Resolved]
  - Hypokalaemia [Recovered/Resolved]
  - Fall [Unknown]
  - Nausea [Recovered/Resolved]
  - Vomiting [Recovered/Resolved]

NARRATIVE: CASE EVENT DATE: 20190403
